FAERS Safety Report 5201247-7 (Version None)
Quarter: 2007Q1

REPORT INFORMATION
  Report Type: 
  Country: None (occurrence: None)
  Receive Date: 20070104
  Receipt Date: 20061219
  Transmission Date: 20070707
  Serious: Yes (Life-Threatening, Hospitalization)
  Sender: FDA-Public Use
  Company Number: GXKR2006US08307

PATIENT
  Age: 51 Year
  Sex: Female

DRUGS (2)
  1. METFORMIN HCL [Suspect]
  2. INSULIN (INSULIN) INJECTION [Concomitant]

REACTIONS (5)
  - CONVULSION [None]
  - HAEMODIALYSIS [None]
  - INTENTIONAL OVERDOSE [None]
  - LACTIC ACIDOSIS [None]
  - SUICIDE ATTEMPT [None]
